FAERS Safety Report 8153943-X (Version None)
Quarter: 2012Q1

REPORT INFORMATION
  Report Type: 
  Country: None (occurrence: None)
  Receive Date: 20120221
  Receipt Date: 20120221
  Transmission Date: 20120608
  Serious: No
  Sender: FDA-Public Use
  Company Number: None

PATIENT
  Sex: Male
  Weight: 72.574 kg

DRUGS (1)
  1. SUTENT [Suspect]
     Indication: GASTROINTESTINAL STROMAL TUMOUR
     Dosage: 50.0 MG
     Route: 048
     Dates: start: 20120119, end: 20120213

REACTIONS (4)
  - OROPHARYNGEAL PAIN [None]
  - FACE OEDEMA [None]
  - PAIN IN JAW [None]
  - TONGUE DISORDER [None]
